FAERS Safety Report 5893889-0 (Version None)
Quarter: 2008Q3

REPORT INFORMATION
  Report Type: 
  Country: None (occurrence: None)
  Receive Date: 20080923
  Receipt Date: 20080303
  Transmission Date: 20090109
  Serious: No
  Sender: FDA-Public Use
  Company Number: US-ASTRAZENECA-2007UW27508

PATIENT
  Age: 68 Year
  Sex: Male

DRUGS (1)
  1. SEROQUEL [Suspect]
     Indication: INSOMNIA
     Route: 048

REACTIONS (4)
  - CHEST DISCOMFORT [None]
  - INSOMNIA [None]
  - OROPHARYNGEAL PAIN [None]
  - TOOTH DISORDER [None]
